FAERS Safety Report 5573701-X (Version None)
Quarter: 2007Q4

REPORT INFORMATION
  Report Type: 
  Country: None (occurrence: None)
  Receive Date: 20071220
  Receipt Date: 20071109
  Transmission Date: 20080405
  Serious: Yes (Other)
  Sender: FDA-Public Use
  Company Number: SPV1-2007-04908

PATIENT
  Age: 11 Year
  Sex: Male

DRUGS (2)
  1. ADDERALL 10 [Suspect]
     Dates: start: 20060101
  2. DAYTRANA [Suspect]
     Dosage: TRANSDERMAL
     Route: 062

REACTIONS (3)
  - DECREASED APPETITE [None]
  - INTERVERTEBRAL DISC DEGENERATION [None]
  - WEIGHT GAIN POOR [None]
